FAERS Safety Report 15697363 (Version 2)
Quarter: 2018Q4

REPORT INFORMATION
  Report Type: Spontaneous
  Country: US (occurrence: US)
  Receive Date: 20181207
  Receipt Date: 20181219
  Transmission Date: 20190205
  Serious: Yes (Other)
  Sender: FDA-Public Use
  Company Number: US-ASTRAZENECA-2018SF52141

PATIENT
  Age: 70 Year
  Sex: Female
  Weight: 95 kg

DRUGS (5)
  1. ATACAND [Suspect]
     Active Substance: CANDESARTAN CILEXETIL
     Route: 048
  2. BREO ELLIPTA [Concomitant]
     Active Substance: FLUTICASONE FUROATE\VILANTEROL TRIFENATATE
     Indication: ASTHMA
     Dosage: 200, 1 PUFF DAILY
     Dates: start: 20180320
  3. LISINOPRIL. [Suspect]
     Active Substance: LISINOPRIL
     Route: 048
  4. FASENRA [Suspect]
     Active Substance: BENRALIZUMAB
     Indication: ASTHMA
     Dosage: 30.0MG UNKNOWN
     Route: 058
     Dates: start: 20181101
  5. INCRUSE ELIPTA [Concomitant]
     Indication: ASTHMA
     Dosage: 200, 1 PUFF DAILY
     Dates: start: 20180320

REACTIONS (2)
  - Drug hypersensitivity [Unknown]
  - Deafness [Unknown]

NARRATIVE: CASE EVENT DATE: 20181103
